FAERS Safety Report 10962372 (Version 1)
Quarter: 2015Q1

REPORT INFORMATION
  Report Type: Report from Study
  Country: CA (occurrence: CA)
  Receive Date: 20150327
  Receipt Date: 20150327
  Transmission Date: 20150721
  Serious: Yes (Other)
  Sender: FDA-Public Use
  Company Number: CA-TEVA-510969USA

PATIENT
  Sex: Female

DRUGS (5)
  1. OMEGA 3 COMPLEX [Concomitant]
  2. VITAMIN D [Concomitant]
     Active Substance: CHOLECALCIFEROL
  3. MULTIVITAMIN [Concomitant]
     Active Substance: VITAMINS
  4. COPAXONE [Suspect]
     Active Substance: GLATIRAMER ACETATE
     Indication: MULTIPLE SCLEROSIS
     Dosage: 20 MILLIGRAM DAILY;
     Route: 065
     Dates: start: 20120925
  5. VITAMIN B12 [Concomitant]
     Active Substance: CYANOCOBALAMIN

REACTIONS (2)
  - Goitre [Unknown]
  - Thyroid disorder [Unknown]
